FAERS Safety Report 18450444 (Version 1)
Quarter: 2020Q4

REPORT INFORMATION
  Report Type: Report from Study
  Country: FR (occurrence: FR)
  Receive Date: 20201030
  Receipt Date: 20201030
  Transmission Date: 20210114
  Serious: Yes (Other)
  Sender: FDA-Public Use
  Company Number: FR-GILEAD-2020-0499730

PATIENT
  Age: 41 Year
  Sex: Male
  Weight: 93 kg

DRUGS (5)
  1. CLAFORAN [Concomitant]
     Active Substance: CEFOTAXIME SODIUM
     Indication: LUNG DISORDER
     Dosage: 2 G
     Route: 042
     Dates: start: 20201011
  2. LOVENOX [Concomitant]
     Active Substance: ENOXAPARIN SODIUM
     Indication: COVID-19
     Dosage: 9000 IU, BID
     Route: 058
     Dates: start: 20201011
  3. REMDESIVIR. [Suspect]
     Active Substance: REMDESIVIR
     Indication: COVID-19
     Dosage: 100 MG, QD
     Route: 042
     Dates: start: 20201012, end: 20201013
  4. DEXAMETHASONE. [Concomitant]
     Active Substance: DEXAMETHASONE
     Indication: COVID-19
     Dosage: 6 MG, QD
     Route: 042
     Dates: start: 20201011
  5. OXYGEN. [Concomitant]
     Active Substance: OXYGEN
     Indication: COVID-19
     Dosage: UNK
     Dates: start: 20201011

REACTIONS (1)
  - Hepatocellular injury [Recovering/Resolving]

NARRATIVE: CASE EVENT DATE: 20201014
